FAERS Safety Report 7426050-9 (Version None)
Quarter: 2011Q2

REPORT INFORMATION
  Report Type: 
  Country: None (occurrence: None)
  Receive Date: 20110420
  Receipt Date: 20110412
  Transmission Date: 20111010
  Serious: Yes (Hospitalization, Disabling)
  Sender: FDA-Public Use
  Company Number: US-ASTRAZENECA-2011SE21587

PATIENT
  Sex: Male

DRUGS (3)
  1. CRESTOR [Suspect]
     Route: 048
  2. NEXIUM [Suspect]
     Route: 048
  3. SYMBICORT [Suspect]
     Route: 055

REACTIONS (5)
  - BLINDNESS [None]
  - LUNG DISORDER [None]
  - CARPAL TUNNEL DECOMPRESSION [None]
  - DEAFNESS [None]
  - SPINAL COMPRESSION FRACTURE [None]
